FAERS Safety Report 5114652-4 (Version None)
Quarter: 2006Q3

REPORT INFORMATION
  Report Type: 
  Country: None (occurrence: None)
  Receive Date: 20060926
  Receipt Date: 20060914
  Transmission Date: 20061208
  Serious: Yes (Death, Other)
  Sender: FDA-Public Use
  Company Number: US-JNJFOC-20041204877

PATIENT
  Sex: Female

DRUGS (10)
  1. INFIXIMAB [Suspect]
     Indication: RHEUMATOID ARTHRITIS
     Route: 042
  2. FOSAMAX [Concomitant]
  3. LASIX [Concomitant]
  4. OSCAL D [Concomitant]
  5. TRACHEER/BOSENTA [Concomitant]
  6. AMBIEN [Concomitant]
  7. COUMADIN [Concomitant]
  8. PLAQUENIL [Concomitant]
  9. SYNTHROID [Concomitant]
  10. TYLENOL [Concomitant]

REACTIONS (5)
  - ACUTE MYOCARDIAL INFARCTION [None]
  - COR PULMONALE [None]
  - LUMBAR VERTEBRAL FRACTURE [None]
  - PELVIC FRACTURE [None]
  - PULMONARY HYPERTENSION [None]
